FAERS Safety Report 9141211 (Version 1)
Quarter: 2013Q1

REPORT INFORMATION
  Report Type: Spontaneous
  Country: US (occurrence: US)
  Receive Date: 20130305
  Receipt Date: 20130305
  Transmission Date: 20140127
  Serious: No
  Sender: FDA-Public Use
  Company Number: US-AMGEN-USASP2013007846

PATIENT
  Age: 18 Year
  Sex: Female

DRUGS (1)
  1. ENBREL [Suspect]
     Indication: JUVENILE IDIOPATHIC ARTHRITIS
     Dosage: 50 MG, WEEKLY
     Dates: start: 20130125

REACTIONS (3)
  - Dry skin [Not Recovered/Not Resolved]
  - Joint crepitation [Not Recovered/Not Resolved]
  - Erythema [Not Recovered/Not Resolved]
